FAERS Safety Report 22367920 (Version 1)
Quarter: 2023Q2

REPORT INFORMATION
  Report Type: Spontaneous
  Country: US (occurrence: None)
  Receive Date: 20230525
  Receipt Date: 20230525
  Transmission Date: 20230722
  Serious: No
  Sender: FDA-Public Use
  Company Number: None

PATIENT
  Age: 59 Year
  Sex: Female

DRUGS (1)
  1. HUMIRA [Suspect]
     Active Substance: ADALIMUMAB
     Indication: Psoriasis
     Dosage: INJECT 80MG PEN UNDER THE SKIN ON DAY 1, THEN 40MG PEN ON DAY 8, THEN 40MG EVERY 14 DAYS THEREAFTER.
     Route: 058

REACTIONS (5)
  - Injection site paraesthesia [None]
  - Injection site pain [None]
  - Accidental exposure to product [None]
  - Exposure via skin contact [None]
  - Drug dose omission by device [None]

NARRATIVE: CASE EVENT DATE: 20230325
